FAERS Safety Report 5467101-0 (Version None)
Quarter: 2007Q3

REPORT INFORMATION
  Report Type: 
  Country: None (occurrence: None)
  Receive Date: 20070920
  Receipt Date: 20070912
  Transmission Date: 20080115
  Serious: Yes (Hospitalization)
  Sender: FDA-Public Use
  Company Number: 2007SP017583

PATIENT
  Age: 50 Year
  Sex: Male
  Weight: 49 kg

DRUGS (5)
  1. CLARITIN [Suspect]
     Indication: ECZEMA NUMMULAR
     Dosage: 10 MG; ;PO
     Route: 048
     Dates: start: 20070511, end: 20070522
  2. CLARITIN [Suspect]
     Indication: INFECTION
     Dosage: 10 MG; ;PO
     Route: 048
     Dates: start: 20070511, end: 20070522
  3. FLOMOX [Concomitant]
  4. PREDNISOLONE [Concomitant]
  5. MUCOSTA [Concomitant]

REACTIONS (11)
  - ALANINE AMINOTRANSFERASE INCREASED [None]
  - ASPARTATE AMINOTRANSFERASE INCREASED [None]
  - BLOOD ALKALINE PHOSPHATASE INCREASED [None]
  - BLOOD BILIRUBIN INCREASED [None]
  - BLOOD LACTATE DEHYDROGENASE INCREASED [None]
  - DRUG HYPERSENSITIVITY [None]
  - GAMMA-GLUTAMYLTRANSFERASE INCREASED [None]
  - LIVER DISORDER [None]
  - LYMPHOCYTE STIMULATION TEST POSITIVE [None]
  - MALAISE [None]
  - PROTHROMBIN TIME PROLONGED [None]
